FAERS Safety Report 7757794-7 (Version None)
Quarter: 2011Q3

REPORT INFORMATION
  Report Type: 
  Country: None (occurrence: None)
  Receive Date: 20110918
  Receipt Date: 20110908
  Transmission Date: 20111222
  Serious: Yes (Hospitalization)
  Sender: FDA-Public Use
  Company Number: FR-ASTRAZENECA-2011SE54299

PATIENT
  Age: 89 Year
  Sex: Female

DRUGS (4)
  1. TENORMIN [Suspect]
     Route: 048
     Dates: start: 20110408, end: 20110501
  2. TENORMIN [Suspect]
     Route: 048
     Dates: start: 20110501, end: 20110512
  3. PROCORALAN [Suspect]
     Route: 048
     Dates: start: 20110506, end: 20110512
  4. TENORMIN [Suspect]
     Route: 048
     Dates: start: 20080101, end: 20110408

REACTIONS (2)
  - BRADYCARDIA [None]
  - MALAISE [None]
